FAERS Safety Report 9203999 (Version 1)
Quarter: 2013Q2

REPORT INFORMATION
  Report Type: Spontaneous
  Country: US (occurrence: US)
  Receive Date: 20130402
  Receipt Date: 20130402
  Transmission Date: 20140414
  Serious: Yes (Other)
  Sender: FDA-Public Use
  Company Number: PHEH2013US007104

PATIENT
  Sex: Male

DRUGS (2)
  1. VALTURNA [Suspect]
     Indication: HYPERTENSION
     Dosage: 320 MG, QD
     Route: 048
  2. LISINOPRIL [Concomitant]
     Dosage: UNK UKN, UNK

REACTIONS (5)
  - Prostate cancer [Unknown]
  - Malaise [Unknown]
  - Renal disorder [Unknown]
  - Drug intolerance [Unknown]
  - Nausea [Unknown]
